FAERS Safety Report 18477030 (Version 4)
Quarter: 2021Q3

REPORT INFORMATION
  Report Type: Report from Study
  Country: US (occurrence: US)
  Receive Date: 20201107
  Receipt Date: 20210910
  Transmission Date: 20211014
  Serious: No
  Sender: FDA-Public Use
  Company Number: NVSC2020US290829

PATIENT
  Sex: Male

DRUGS (1)
  1. KESIMPTA [Suspect]
     Active Substance: OFATUMUMAB
     Indication: PRODUCT USED FOR UNKNOWN INDICATION
     Dosage: UNK
     Route: 065

REACTIONS (6)
  - Body temperature fluctuation [Unknown]
  - Respiratory rate increased [Unknown]
  - Hypertension [Unknown]
  - Speech disorder [Unknown]
  - Laryngitis [Unknown]
  - General physical health deterioration [Unknown]
